FAERS Safety Report 18033038 (Version 2)
Quarter: 2021Q1

REPORT INFORMATION
  Report Type: Spontaneous
  Country: US (occurrence: US)
  Receive Date: 20200716
  Receipt Date: 20210218
  Transmission Date: 20210419
  Serious: No
  Sender: FDA-Public Use
  Company Number: US-SA-2020SA183611

PATIENT
  Sex: Female

DRUGS (1)
  1. DUPIXENT [Suspect]
     Active Substance: DUPILUMAB
     Indication: DERMATITIS ATOPIC
     Dosage: 300 MG, QOW
     Route: 058
     Dates: start: 20180919

REACTIONS (10)
  - Oral pain [Recovered/Resolved]
  - Swelling face [Recovered/Resolved]
  - Stomatitis [Recovered/Resolved]
  - Condition aggravated [Unknown]
  - Dysphagia [Recovered/Resolved]
  - Dry mouth [Unknown]
  - Oral candidiasis [Recovered/Resolved]
  - Pharyngeal inflammation [Recovered/Resolved]
  - Oropharyngeal pain [Recovered/Resolved]
  - Dysgeusia [Unknown]
